FAERS Safety Report 24739225 (Version 2)
Quarter: 2024Q4

REPORT INFORMATION
  Report Type: Spontaneous
  Country: ES (occurrence: ES)
  Receive Date: 20241216
  Receipt Date: 20241219
  Transmission Date: 20250115
  Serious: Yes (Life-Threatening, Hospitalization)
  Sender: PFIZER
  Company Number: ES-MLMSERVICE-20241206-PI274696-00271-2

PATIENT
  Age: 58 Year
  Sex: Female

DRUGS (3)
  1. RITUXIMAB [Suspect]
     Active Substance: RITUXIMAB
     Indication: Systemic scleroderma
     Dosage: 5 MG, 1X/DAY
     Dates: end: 202305
  2. PREDNISONE [Suspect]
     Active Substance: PREDNISONE
     Indication: Systemic scleroderma
     Dosage: 5 MG, 1X/DAY, CHRONIC
  3. PREDNISONE [Suspect]
     Active Substance: PREDNISONE
     Dosage: 60 MG, 1X/DAY
     Dates: start: 2023

REACTIONS (5)
  - Immunosuppression [Recovering/Resolving]
  - COVID-19 [Recovered/Resolved]
  - Organising pneumonia [Recovering/Resolving]
  - Respiratory failure [Recovering/Resolving]
  - Off label use [Recovering/Resolving]

NARRATIVE: CASE EVENT DATE: 20230101
